FAERS Safety Report 9669318 (Version 3)
Quarter: 2014Q1

REPORT INFORMATION
  Report Type: Spontaneous
  Country: NO (occurrence: None)
  Receive Date: 20131101
  Receipt Date: 20140310
  Transmission Date: 20141002
  Serious: Yes (Death, Life-Threatening, Hospitalization, Disabling)
  Sender: FDA-Public Use
  Company Number: 2013DEPNO00034

PATIENT
  Age: 60 Year
  Sex: Male

DRUGS (17)
  1. DEPOCYT [Suspect]
     Indication: LYMPHOMA
     Route: 037
     Dates: start: 20120518, end: 20120518
  2. METHOTREXATE (METHOTREXATE SODIUM) [Suspect]
     Indication: LYMPHOMA
     Route: 042
     Dates: start: 20120516, end: 20120516
  3. PEGFILGRASTIN [Concomitant]
  4. TRIMETOPRIM-SULFA (SULFAMETHOXAZOLE, TRIMETHOPRIM) [Concomitant]
  5. PANTOPRAZOLE [Concomitant]
  6. METOPROLOL (METOPROLOL TARTRATE) [Concomitant]
  7. ATORVASTATIN CALCIUM [Concomitant]
  8. CYTARABINE (CYTARABINE) [Suspect]
     Indication: CHEMOTHERAPY
     Dosage: 3300 MG, AM + P, INTRAVENOUS
     Route: 042
     Dates: start: 20120822, end: 20120822
  9. CYCLOPHOSPHAMAIDE [Suspect]
     Indication: LYMPHOMA
     Dates: start: 20120514, end: 20120822
  10. DEXAMETHASONE (DEXAMETHASONE) [Suspect]
     Indication: LYMPHOMA
     Dates: start: 20120514, end: 20120822
  11. ETOPOSIDE (ETOPOSIDE PHOSPHATE) [Suspect]
     Indication: LYMPHOMA
     Dates: start: 20120514, end: 20120822
  12. ETOPOSIDE (ETOPOSIDE PHOSPHATE) [Suspect]
     Indication: LYMPHOMA
     Dates: start: 20120514, end: 20120822
  13. ETOPOSIDE (ETOPOSIDE PHOSPHATE) [Suspect]
     Indication: LYMPHOMA
     Dates: start: 20120514, end: 20120822
  14. DOXORUBICIN [Suspect]
     Indication: LYMPHOMA
     Dates: start: 20120514, end: 20120822
  15. RITUXIMAB (RITUXIMAB) [Suspect]
     Indication: LYMPHOMA
     Dates: start: 20120514, end: 20120822
  16. VINCRISTINE [Suspect]
     Dates: start: 20120514, end: 20120822
  17. PREDNISONE [Suspect]
     Dates: start: 20120814, end: 20120822

REACTIONS (6)
  - Progressive multifocal leukoencephalopathy [None]
  - General physical condition normal [None]
  - Bedridden [None]
  - Hemiparesis [None]
  - Facial nerve disorder [None]
  - Glossopharyngeal nerve disorder [None]
